FAERS Safety Report 12968846 (Version 12)
Quarter: 2017Q3

REPORT INFORMATION
  Report Type: Spontaneous
  Country: US (occurrence: US)
  Receive Date: 20161123
  Receipt Date: 20170925
  Transmission Date: 20171127
  Serious: Yes (Other)
  Sender: FDA-Public Use
  Company Number: US-PFIZER INC-2016544541

PATIENT
  Age: 53 Year
  Sex: Male
  Weight: 80 kg

DRUGS (15)
  1. KLONOPIN [Concomitant]
     Active Substance: CLONAZEPAM
     Indication: NERVE INJURY
  2. KLONOPIN [Concomitant]
     Active Substance: CLONAZEPAM
     Indication: RESTLESS LEGS SYNDROME
  3. CAVERJECT [Suspect]
     Active Substance: ALPROSTADIL
     Dosage: 20 UG, ONCE DAILY AS NEEDED (ONLY USING EVERY COUPLE OF DAYS)
     Dates: start: 201608
  4. PERCOCET [Concomitant]
     Active Substance: ACETAMINOPHEN\OXYCODONE HYDROCHLORIDE
     Indication: JOINT INJURY
  5. CAVERJECT [Suspect]
     Active Substance: ALPROSTADIL
     Dosage: 20 UG, UNK
     Dates: start: 201608
  6. MORPHINE [Concomitant]
     Active Substance: MORPHINE
     Indication: BACK DISORDER
     Dosage: 30 MG, 2X/DAY
     Route: 048
  7. CAVERJECT [Suspect]
     Active Substance: ALPROSTADIL
     Dosage: UNK
     Dates: start: 20170329
  8. ZOLOFT [Concomitant]
     Active Substance: SERTRALINE HYDROCHLORIDE
     Indication: DEPRESSION
     Dosage: 50 MG, 1X/DAY
  9. KLONOPIN [Concomitant]
     Active Substance: CLONAZEPAM
     Indication: PAIN IN EXTREMITY
     Dosage: 1.5 MG, 3X/DAY
     Route: 048
     Dates: start: 2014
  10. CAVERJECT [Suspect]
     Active Substance: ALPROSTADIL
     Indication: ERECTILE DYSFUNCTION
     Dosage: 20 UG, ONCE DAILY AS NEEDED (ONLY USING EVERY COUPLE OF DAYS)
     Dates: start: 20160506
  11. PERCOCET [Concomitant]
     Active Substance: ACETAMINOPHEN\OXYCODONE HYDROCHLORIDE
     Indication: NERVE INJURY
     Dosage: 10-325 MG TABLETS 3 TIMES A DAY BY MOUTH
     Route: 048
     Dates: start: 2013
  12. CAVERJECT [Suspect]
     Active Substance: ALPROSTADIL
     Dosage: 20 UG, ONCE DAILY AS NEEDED (ONLY USING EVERY COUPLE OF DAYS)
     Dates: start: 201608
  13. PERCOCET [Concomitant]
     Active Substance: ACETAMINOPHEN\OXYCODONE HYDROCHLORIDE
     Indication: BACK DISORDER
     Dosage: UNK UNK, 4X/DAY
     Dates: start: 2016
  14. PERCOCET [Concomitant]
     Active Substance: ACETAMINOPHEN\OXYCODONE HYDROCHLORIDE
     Indication: LIMB INJURY
  15. PERCOCET [Concomitant]
     Active Substance: ACETAMINOPHEN\OXYCODONE HYDROCHLORIDE
     Indication: BACK INJURY

REACTIONS (17)
  - Rash [Unknown]
  - Poor quality drug administered [Unknown]
  - Product quality issue [Unknown]
  - Wrong technique in product usage process [Unknown]
  - Penile size reduced [Unknown]
  - Penile curvature [Unknown]
  - Penis disorder [Unknown]
  - Penile pain [Not Recovered/Not Resolved]
  - Injection site pain [Unknown]
  - Underdose [Unknown]
  - Product storage error [Unknown]
  - Erection increased [Unknown]
  - Drug ineffective [Not Recovered/Not Resolved]
  - Genital rash [Not Recovered/Not Resolved]
  - Ejaculation failure [Unknown]
  - Fatigue [Unknown]
  - Product physical consistency issue [Unknown]

NARRATIVE: CASE EVENT DATE: 2016
